FAERS Safety Report 8767856 (Version 2)
Quarter: 2019Q3

REPORT INFORMATION
  Report Type: Spontaneous
  Country: DE (occurrence: DE)
  Receive Date: 20120905
  Receipt Date: 20190906
  Transmission Date: 20191005
  Serious: Yes (Other)
  Sender: FDA-Public Use
  Company Number: GXKR2012DE002781

PATIENT
  Age: 40 Year
  Sex: Female
  Weight: 84 kg

DRUGS (13)
  1. PROMETHAZINE [Suspect]
     Active Substance: PROMETHAZINE HYDROCHLORIDE
     Dosage: 10 MG, Q8H (FIRST 3X10 MG/D, LATER 4X50 MG/D, FROM 6.6GW TO 32.5 GW)
     Route: 048
     Dates: start: 20110527, end: 20111124
  2. RISPERDAL [Suspect]
     Active Substance: RISPERIDONE
     Indication: PSYCHOTIC DISORDER
     Dosage: 25 MG, Q2W
     Route: 030
     Dates: start: 20110401, end: 2011
  3. RISPERDAL [Suspect]
     Active Substance: RISPERIDONE
     Dosage: 25 MG [UNTIL GW 5 EVERY 2 W?EKS, AFTERWARDS EVERY 3 WEEKS)
     Route: 030
     Dates: start: 20110401, end: 20111124
  4. IBUPROFEN. [Concomitant]
     Active Substance: IBUPROFEN
     Indication: TRIGEMINAL NEURALGIA
     Dosage: UNK UKN, PRN
     Route: 048
     Dates: start: 20110927, end: 20111124
  5. SEROQUEL [Suspect]
     Active Substance: QUETIAPINE FUMARATE
     Dosage: 400 MG, QD
     Route: 048
  6. TOLPERISONE [Concomitant]
     Active Substance: TOLPERISONE
     Indication: PRODUCT USED FOR UNKNOWN INDICATION
     Dosage: UNK
     Route: 048
     Dates: start: 20110409, end: 20110516
  7. BETAMETHASONE. [Concomitant]
     Active Substance: BETAMETHASONE
     Indication: MATERNAL THERAPY TO ENHANCE FOETAL LUNG MATURITY
     Dosage: 12 MG, QD
     Route: 030
     Dates: start: 20111120, end: 20111121
  8. SEROQUEL [Suspect]
     Active Substance: QUETIAPINE FUMARATE
     Indication: PSYCHOTIC DISORDER
     Dosage: 400 [MG/D ]/ REDUCTION TO 200 MG/D FROM GW 5 ON
     Route: 048
     Dates: start: 20110409, end: 20111124
  9. CARBAMAZEPINE. [Concomitant]
     Active Substance: CARBAMAZEPINE
     Indication: TRIGEMINAL NEURALGIA
     Dosage: 100 MG, TID
     Route: 048
     Dates: start: 20110927, end: 20111124
  10. SEROQUEL [Suspect]
     Active Substance: QUETIAPINE FUMARATE
     Dosage: 200 MG, QD
     Route: 048
  11. MELPERONE [Concomitant]
     Active Substance: MELPERONE
     Indication: PSYCHOTIC DISORDER
     Dosage: UNK MG, UNK (0. - 5.2. GESTATIONAL WEEK)
     Route: 048
     Dates: start: 20110409, end: 20110516
  12. ACETYLSALICYLSAEURE [Concomitant]
     Active Substance: ASPIRIN
     Indication: PRE-ECLAMPSIA
     Dosage: 100 MG, QD
     Route: 048
     Dates: end: 20111120
  13. PROMETHAZINE [Suspect]
     Active Substance: PROMETHAZINE HYDROCHLORIDE
     Indication: RESTLESSNESS
     Dosage: 50 MG, Q6H (DAILY DOSE: 200 MG, EVERY DAY)
     Route: 048
     Dates: start: 2011, end: 20111124

REACTIONS (7)
  - Inappropriate schedule of product administration [Recovered/Resolved]
  - Gestational diabetes [Recovered/Resolved]
  - Exposure during pregnancy [Unknown]
  - Premature delivery [Unknown]
  - Trigeminal neuralgia [Unknown]
  - Premature labour [Recovered/Resolved]
  - Pre-eclampsia [Recovered/Resolved]

NARRATIVE: CASE EVENT DATE: 2011
